FAERS Safety Report 12762914 (Version 1)
Quarter: 2016Q3

REPORT INFORMATION
  Report Type: Report from Study
  Country: JP (occurrence: JP)
  Receive Date: 20160920
  Receipt Date: 20160920
  Transmission Date: 20161109
  Serious: Yes (Death, Hospitalization)
  Sender: FDA-Public Use
  Company Number: JP-DSJP-DSJ-2016-130667

PATIENT

DRUGS (13)
  1. GRANISETRON [Concomitant]
     Active Substance: GRANISETRON
     Dosage: 3MG/DAY
     Route: 042
     Dates: start: 20160224, end: 20160224
  2. FOIPAN [Concomitant]
     Active Substance: CAMOSTAT MESYLATE
     Dosage: 300MG/DAY
     Route: 048
  3. DEXART [Concomitant]
     Active Substance: DEXAMETHASONE SODIUM PHOSPHATE
     Dosage: 6.6MG/DAY
     Route: 042
     Dates: start: 20160210, end: 20160210
  4. DEXART [Concomitant]
     Active Substance: DEXAMETHASONE SODIUM PHOSPHATE
     Dosage: 6.6MG/DAY
     Route: 042
     Dates: start: 20160224, end: 20160224
  5. EDOXABAN [Suspect]
     Active Substance: EDOXABAN TOSYLATE
     Indication: PULMONARY EMBOLISM
     Dosage: 30 MG, QD
     Route: 048
     Dates: start: 20160203, end: 20160302
  6. MIYA-BM [Concomitant]
     Active Substance: CLOSTRIDIUM BUTYRICUM SPORES STRAIN M-55
     Dosage: 60MG/DAY
     Route: 048
  7. WYSTAL [Concomitant]
     Active Substance: CEFOPERAZONE SODIUM\SULBACTAM SODIUM
     Dosage: 2G/DAY
     Route: 042
     Dates: start: 20160129, end: 20160208
  8. GRANISETRON [Concomitant]
     Active Substance: GRANISETRON
     Dosage: 3MG/DAY
     Route: 042
     Dates: start: 20160210, end: 20160210
  9. GEMCITABINE [Concomitant]
     Active Substance: GEMCITABINE\GEMCITABINE HYDROCHLORIDE
     Dosage: 1100MG/DAY
     Route: 042
     Dates: start: 20160224, end: 20160224
  10. LANSOPRAZOLE. [Concomitant]
     Active Substance: LANSOPRAZOLE
     Dosage: 15MG/DAY
     Route: 048
  11. GEMCITABINE [Concomitant]
     Active Substance: GEMCITABINE\GEMCITABINE HYDROCHLORIDE
     Dosage: 1100MG/DAY
     Route: 042
     Dates: start: 20160210, end: 20160210
  12. CISPLATIN. [Concomitant]
     Active Substance: CISPLATIN
     Dosage: 40MG/DAY
     Route: 042
     Dates: start: 20160224, end: 20160224
  13. LOXOPROFEN [Concomitant]
     Active Substance: LOXOPROFEN
     Dosage: 120MG/DAY
     Route: 048

REACTIONS (2)
  - Death [Fatal]
  - Anaemia [Recovered/Resolved]

NARRATIVE: CASE EVENT DATE: 20160302
